FAERS Safety Report 5763402-7 (Version None)
Quarter: 2008Q2

REPORT INFORMATION
  Report Type: 
  Country: None (occurrence: None)
  Receive Date: 20080604
  Receipt Date: 20080604
  Transmission Date: 20081010
  Serious: Yes (Hospitalization, Disabling, Other)
  Sender: FDA-Public Use
  Company Number: None

PATIENT
  Age: 64 Year
  Sex: Female
  Weight: 96.1626 kg

DRUGS (1)
  1. DIGITEX TAB 0.25MG MYLAN BERTEK [Suspect]
     Indication: ARRHYTHMIA
     Dosage: FILLED 02/07/08 1 TABLET PER DAY
     Dates: start: 20080207, end: 20080510

REACTIONS (7)
  - DIZZINESS [None]
  - FATIGUE [None]
  - HEART RATE DECREASED [None]
  - HEART RATE IRREGULAR [None]
  - HYPOTENSION [None]
  - NAUSEA [None]
  - PHARMACEUTICAL PRODUCT COMPLAINT [None]
